FAERS Safety Report 17953531 (Version 1)
Quarter: 2020Q2

REPORT INFORMATION
  Report Type: Spontaneous
  Country: DE (occurrence: DE)
  Receive Date: 20200628
  Receipt Date: 20200628
  Transmission Date: 20200714
  Serious: Yes (Hospitalization)
  Sender: FDA-Public Use
  Company Number: DE-DEXPHARM-20200536

PATIENT
  Age: 77 Year
  Sex: Female

DRUGS (13)
  1. BORTEZOMIB. [Suspect]
     Active Substance: BORTEZOMIB
     Dosage: 25 MG, 1-0-0-0
     Route: 058
     Dates: end: 20200420
  2. ACETYLSALICYLSURE [Concomitant]
     Active Substance: ASPIRIN
     Dosage: 25 MG, 1-0-0-0
     Route: 048
  3. CALCIUMCARBONAT [Concomitant]
     Dosage: 25 MG, 1-0-0-0
     Route: 048
  4. PANTOPRAZOL [Concomitant]
     Active Substance: PANTOPRAZOLE SODIUM
     Dosage: 25 MG, 1-0-0-0
     Route: 048
  5. AMIODARON [Concomitant]
     Active Substance: AMIODARONE
     Dosage: 25 MG, 1-0-0-0
     Route: 048
  6. DEXAMETHASONE. [Suspect]
     Active Substance: DEXAMETHASONE
     Dosage: 25 MG, 1-0-0-0
     Route: 048
     Dates: end: 20200422
  7. COTRIM FORTE 800MG/160MG [Concomitant]
     Dosage: 25 MG, 1-0-0-0
     Route: 048
  8. BISOPROLOL [Interacting]
     Active Substance: BISOPROLOL
     Dosage: 25 MG, 1-0-0-0
     Route: 048
  9. ACIC 200MG [Concomitant]
     Dosage: 25 MG, 1-0-0-0
     Route: 048
  10. ATORVASTATIN [Concomitant]
     Active Substance: ATORVASTATIN
     Dosage: 25 MG, 1-0-0-0
     Route: 048
  11. LEVOTHYROXIN-NATRIUM [Concomitant]
     Active Substance: LEVOTHYROXINE SODIUM
     Dosage: 25 MG, 1-0-0-0
     Route: 048
  12. VIGANTOLETTEN 1000I.E. [Concomitant]
     Active Substance: CHOLECALCIFEROL
     Dosage: 25 MG, 1-0-0-0
     Route: 048
  13. SPIRONOLACTON [Concomitant]
     Active Substance: SPIRONOLACTONE
     Dosage: 25 MG, 1-0-0-0
     Route: 048

REACTIONS (2)
  - Drug interaction [Unknown]
  - Pyrexia [Unknown]
